FAERS Safety Report 17239990 (Version 1)
Quarter: 2020Q1

REPORT INFORMATION
  Report Type: Spontaneous
  Country: FR (occurrence: FR)
  Receive Date: 20200107
  Receipt Date: 20200107
  Transmission Date: 20200409
  Serious: Yes (Other)
  Sender: FDA-Public Use
  Company Number: FR-AUROBINDO-AUR-APL-2019-108649

PATIENT
  Age: 31 Year
  Sex: Female
  Weight: 40 kg

DRUGS (2)
  1. FLUCONAZOLE ARROW [Suspect]
     Active Substance: FLUCONAZOLE
     Indication: VAGINAL INFECTION
     Dosage: 200 MILLIGRAM, ONCE A DAY
     Route: 048
     Dates: start: 20191201, end: 20191205
  2. CLINDAMYCIN PHOSPHATE. [Suspect]
     Active Substance: CLINDAMYCIN PHOSPHATE
     Indication: VAGINAL INFECTION
     Dosage: 1 DOSAGE FORM, ONCE A DAY
     Route: 067
     Dates: start: 20191201, end: 20191205

REACTIONS (1)
  - Metrorrhagia [Recovering/Resolving]

NARRATIVE: CASE EVENT DATE: 20191205
